FAERS Safety Report 10101302 (Version 1)
Quarter: 2014Q2

REPORT INFORMATION
  Report Type: Spontaneous
  Country: US (occurrence: US)
  Receive Date: 20140424
  Receipt Date: 20140424
  Transmission Date: 20141212
  Serious: No
  Sender: FDA-Public Use
  Company Number: US-PFIZER INC-2014110966

PATIENT
  Age: 59 Year
  Sex: Female

DRUGS (5)
  1. SUTENT [Suspect]
     Indication: RENAL CANCER
     Dosage: 25 MG, QD
     Route: 048
     Dates: start: 20130509
  2. LISINOPRIL [Concomitant]
     Dosage: UNK
  3. XARALTO [Concomitant]
     Dosage: UNK
  4. LASIX [Concomitant]
     Dosage: UNK
  5. CITALOPRAM [Concomitant]
     Dosage: UNK

REACTIONS (4)
  - Dysgeusia [Unknown]
  - Diarrhoea [Unknown]
  - Oral pain [Unknown]
  - Irritability [Unknown]
